FAERS Safety Report 9457775 (Version 1)
Quarter: 2013Q3

REPORT INFORMATION
  Report Type: Spontaneous
  Country: US (occurrence: None)
  Receive Date: 20130809
  Receipt Date: 20130809
  Transmission Date: 20140515
  Serious: Yes (Hospitalization)
  Sender: FDA-Public Use
  Company Number: KAD201307-000904

PATIENT
  Age: 57 Year
  Sex: Female

DRUGS (13)
  1. ANASTROZOLE (ANASTROZOLE) [Suspect]
  2. MILNACIPRAN (MILNACIPRAN) (MILNACIPRAN) [Suspect]
     Indication: FIBROMYALGIA
     Route: 048
  3. FLUOXETINE (FLUOXETINE) [Suspect]
     Route: 048
  4. ALPRAZOLAM (ALPRAZOLAM) [Suspect]
  5. ZOLPIDEM (ZOLPIDEM) [Suspect]
  6. ZOLEDRONIC ACID (ZOLEDRONIC ACID) [Suspect]
  7. DOXEPIN (DOXEPIN) (DOXEPIN) [Suspect]
  8. RANITIDINE (RANITIDINE) [Suspect]
  9. LEVOCETIRIZINE (LEVOCETIRIZINE) [Suspect]
  10. DOXAZOSIN (DOXAZOSIN) [Suspect]
  11. TRAMADOL (TRAMADOL ) [Suspect]
  12. VITAMIN D (VITAMIN D) [Suspect]
  13. FERROUS GLUCONATE (FERROUS GLUCONATE) [Suspect]

REACTIONS (2)
  - Rash morbilliform [None]
  - Serotonin syndrome [None]
